FAERS Safety Report 16198768 (Version 7)
Quarter: 2020Q2

REPORT INFORMATION
  Report Type: Report from Study
  Country: FR (occurrence: FR)
  Receive Date: 20190415
  Receipt Date: 20200612
  Transmission Date: 20200713
  Serious: Yes (Congenital Anomaly, Other)
  Sender: FDA-Public Use
  Company Number: FR-MYLANLABS-2019M1034809

PATIENT
  Age: 35 Week
  Sex: Male
  Weight: 3.16 kg

DRUGS (6)
  1. LAMIVUDINE. [Suspect]
     Active Substance: LAMIVUDINE
     Indication: HIV INFECTION
     Dosage: UNKNOWN
     Route: 064
     Dates: start: 20060202
  2. ZIDOVUDINE. [Suspect]
     Active Substance: ZIDOVUDINE
     Indication: HIV INFECTION
     Dosage: UNKNOWN
     Route: 064
     Dates: start: 20060202
  3. NELFINAVIR MESILATE [Suspect]
     Active Substance: NELFINAVIR MESYLATE
     Dosage: UNKNOWN
     Route: 064
     Dates: start: 20060202
  4. LAMIVUDINE. [Suspect]
     Active Substance: LAMIVUDINE
     Dosage: UNKNOWN
     Route: 064
     Dates: start: 20060202
  5. VIRACEPT [Suspect]
     Active Substance: NELFINAVIR MESYLATE
     Indication: HIV INFECTION
     Dosage: UNK
     Route: 064
     Dates: start: 20060202
  6. NELFINAVIR MESILATE [Suspect]
     Active Substance: NELFINAVIR MESYLATE
     Indication: HIV INFECTION
     Dosage: UNKNOWN
     Route: 064
     Dates: start: 20060202

REACTIONS (3)
  - Foetal exposure during pregnancy [Recovered/Resolved]
  - Haemangioma congenital [Unknown]
  - Congenital teratoma [Unknown]
